FAERS Safety Report 8774270 (Version 2)
Quarter: 2012Q4

REPORT INFORMATION
  Report Type: 
  Country: US (occurrence: US)
  Receive Date: 20120907
  Receipt Date: 20121128
  Transmission Date: 20130627
  Serious: Yes (Other)
  Sender: FDA-Public Use
  Company Number: US-PERRIGO-12US007697

PATIENT
  Age: 43 Year
  Sex: Male

DRUGS (7)
  1. TESTOSTERONE CYPIONATE [Suspect]
     Indication: ERECTILE DYSFUNCTION
     Dosage: UNK, qd
     Route: 030
     Dates: start: 20050131
  2. KEPRA [Concomitant]
     Indication: PRODUCT USED FOR UNKNOWN INDICATION
     Dosage: UNK, UNK
     Route: 048
  3. SINGULAIR [Concomitant]
     Indication: PRODUCT USED FOR UNKNOWN INDICATION
     Dosage: UNK, UNK
     Route: 048
  4. CRESTOR [Concomitant]
     Indication: PRODUCT USED FOR UNKNOWN INDICATION
     Dosage: UNK, UNK
     Route: 048
  5. NIASPAN [Concomitant]
     Indication: PRODUCT USED FOR UNKNOWN INDICATION
     Dosage: UNK, UNK
     Route: 048
  6. AZITHROMYCIN [Concomitant]
     Indication: PRODUCT USED FOR UNKNOWN INDICATION
     Dosage: UNK, UNK
     Route: 048
  7. TYLENOL PM [Concomitant]
     Indication: PRODUCT USED FOR UNKNOWN INDICATION
     Dosage: UNK, UNK
     Route: 048

REACTIONS (14)
  - Brain neoplasm malignant [Not Recovered/Not Resolved]
  - Hallucination [Not Recovered/Not Resolved]
  - Convulsion [Not Recovered/Not Resolved]
  - Schizophrenia [Not Recovered/Not Resolved]
  - Drug dependence [Not Recovered/Not Resolved]
  - Delusion [Not Recovered/Not Resolved]
  - Aggression [Not Recovered/Not Resolved]
  - Libido increased [Not Recovered/Not Resolved]
  - Personality change [Not Recovered/Not Resolved]
  - Snoring [Not Recovered/Not Resolved]
  - Somnambulism [Not Recovered/Not Resolved]
  - Anger [Not Recovered/Not Resolved]
  - Hypersensitivity [Not Recovered/Not Resolved]
  - Drug abuse [Not Recovered/Not Resolved]
